FAERS Safety Report 9733190 (Version 2)
Quarter: 2013Q4

REPORT INFORMATION
  Report Type: Spontaneous
  Country: AT (occurrence: AT)
  Receive Date: 20131205
  Receipt Date: 20131205
  Transmission Date: 20140711
  Serious: Yes (Other)
  Sender: FDA-Public Use
  Company Number: AT-BAYER-2013-037933

PATIENT
  Age: 29 Year
  Sex: Female
  Weight: 68.93 kg

DRUGS (1)
  1. MIRENA [Suspect]
     Dosage: 20 MCG/24HR, CONT
     Route: 015
     Dates: start: 2009

REACTIONS (6)
  - Pregnancy with contraceptive device [None]
  - Drug ineffective [None]
  - Premature labour [None]
  - Placenta accreta [None]
  - Retained placenta or membranes [None]
  - Anaemia [None]
